FAERS Safety Report 12255305 (Version 1)
Quarter: 2016Q2

REPORT INFORMATION
  Report Type: Spontaneous
  Country: US (occurrence: US)
  Receive Date: 20160412
  Receipt Date: 20160412
  Transmission Date: 20160815
  Serious: Yes (Death)
  Sender: FDA-Public Use
  Company Number: US-BEH-2016060850

PATIENT
  Age: 20 Year
  Sex: Male
  Weight: 58 kg

DRUGS (17)
  1. ALBUTEROL. [Concomitant]
     Active Substance: ALBUTEROL
  2. SINGULAIR [Concomitant]
     Active Substance: MONTELUKAST SODIUM
  3. MIRALAX [Concomitant]
     Active Substance: POLYETHYLENE GLYCOL 3350
  4. DIPHENHYDRAMINE. [Concomitant]
     Active Substance: DIPHENHYDRAMINE
  5. LIDOCAINE/PRILOCAINE [Concomitant]
  6. CIPRO [Concomitant]
     Active Substance: CIPROFLOXACIN HYDROCHLORIDE
  7. HIZENTRA [Suspect]
     Active Substance: HUMAN IMMUNOGLOBULIN G
     Indication: IMMUNODEFICIENCY
     Route: 058
     Dates: end: 20160329
  8. CHILDRENS TYLENOL [Concomitant]
     Active Substance: ACETAMINOPHEN
  9. BACTRIM [Concomitant]
     Active Substance: SULFAMETHOXAZOLE\TRIMETHOPRIM
  10. PULMICORT TURBUHALER [Concomitant]
     Active Substance: BUDESONIDE
  11. GUAIFENESIN. [Concomitant]
     Active Substance: GUAIFENESIN
  12. EPIPEN [Concomitant]
     Active Substance: EPINEPHRINE
  13. TOBRAMYCIN. [Concomitant]
     Active Substance: TOBRAMYCIN
  14. TOBI [Concomitant]
     Active Substance: TOBRAMYCIN
  15. AUGMENTIN [Concomitant]
     Active Substance: AMOXICILLIN\CLAVULANATE POTASSIUM
  16. HIZENTRA [Suspect]
     Active Substance: HUMAN IMMUNOGLOBULIN G
     Route: 058
     Dates: end: 20160329
  17. DIFLUCAN [Concomitant]
     Active Substance: FLUCONAZOLE

REACTIONS (1)
  - Death [Fatal]

NARRATIVE: CASE EVENT DATE: 20160329
